FAERS Safety Report 9733970 (Version 1)
Quarter: 2013Q4

REPORT INFORMATION
  Report Type: Report from Study
  Country: FR (occurrence: FR)
  Receive Date: 20131205
  Receipt Date: 20131205
  Transmission Date: 20140711
  Serious: Yes (Hospitalization)
  Sender: FDA-Public Use
  Company Number: PHHO2013FR015441

PATIENT
  Sex: 0

DRUGS (3)
  1. RAD 666 / RAD 001A [Suspect]
     Indication: RENAL TRANSPLANT
     Route: 002
     Dates: start: 20120911, end: 20130117
  2. SOLUPRED [Concomitant]
     Indication: RENAL TRANSPLANT
     Dosage: 15 MG, QD
     Route: 002
     Dates: start: 20120907
  3. CELLCEPT [Concomitant]
     Indication: RENAL TRANSPLANT
     Dosage: 1 G, QD
     Route: 002
     Dates: start: 20120907

REACTIONS (1)
  - Focal segmental glomerulosclerosis [Recovering/Resolving]
